FAERS Safety Report 6190618-0 (Version None)
Quarter: 2009Q2

REPORT INFORMATION
  Report Type: 
  Country: None (occurrence: None)
  Receive Date: 20090514
  Receipt Date: 20090323
  Transmission Date: 20091009
  Serious: No
  Sender: FDA-Public Use
  Company Number: US-BRISTOL-MYERS SQUIBB COMPANY-14558910

PATIENT

DRUGS (3)
  1. IXEMPRA KIT [Suspect]
     Route: 042
  2. TYKERB [Concomitant]
  3. HERCEPTIN [Concomitant]

REACTIONS (1)
  - DIARRHOEA [None]
